FAERS Safety Report 14483077 (Version 2)
Quarter: 2018Q1

REPORT INFORMATION
  Report Type: Spontaneous
  Country: HU (occurrence: HU)
  Receive Date: 20180203
  Receipt Date: 20180209
  Transmission Date: 20180509
  Serious: Yes (Hospitalization, Other)
  Sender: FDA-Public Use
  Company Number: HU-ALLERGAN-1805423US

PATIENT
  Age: 42 Year
  Sex: Female

DRUGS (1)
  1. LEVONORGESTREL - BP [Suspect]
     Active Substance: LEVONORGESTREL
     Indication: PRODUCT USED FOR UNKNOWN INDICATION
     Dosage: 52 MG, SINGLE
     Route: 015
     Dates: start: 20171115, end: 20171122

REACTIONS (3)
  - Device expulsion [Recovered/Resolved]
  - Metrorrhagia [Unknown]
  - Salpingo-oophoritis [Unknown]

NARRATIVE: CASE EVENT DATE: 20171122
